FAERS Safety Report 8202555 (Version 2)
Quarter: 2012Q4

REPORT INFORMATION
  Report Type: Report from Study
  Country: CO (occurrence: CO)
  Receive Date: 20111027
  Receipt Date: 20120907
  Transmission Date: 20130627
  Serious: Yes (Hospitalization, Other)
  Sender: FDA-Public Use
  Company Number: CO-ROCHE-1006240

PATIENT
  Age: 38 Year
  Sex: Female

DRUGS (1)
  1. CELLCEPT [Suspect]
     Indication: HEART TRANSPLANT
     Route: 048
     Dates: start: 20060924

REACTIONS (2)
  - Transplant rejection [Recovering/Resolving]
  - Heart transplant rejection [Not Recovered/Not Resolved]
